FAERS Safety Report 17934627 (Version 1)
Quarter: 2020Q2

REPORT INFORMATION
  Report Type: Spontaneous
  Country: DE (occurrence: DE)
  Receive Date: 20200624
  Receipt Date: 20200624
  Transmission Date: 20200714
  Serious: Yes (Congenital Anomaly, Other)
  Sender: FDA-Public Use
  Company Number: DE-DRREDDYS-GER/GER/20/0124351

PATIENT
  Age: 0 Year
  Sex: Female
  Weight: 2.72 kg

DRUGS (3)
  1. COPAXONE [Suspect]
     Active Substance: GLATIRAMER ACETATE
     Indication: PRODUCT USED FOR UNKNOWN INDICATION
     Dosage: 20 [MG/D (3X/WK) ] 3 SEPARATED DOSES
     Route: 064
     Dates: start: 20181119, end: 20190810
  2. CITALOPRAM [Suspect]
     Active Substance: CITALOPRAM HYDROBROMIDE
     Indication: PRODUCT USED FOR UNKNOWN INDICATION
     Dosage: 22.5 [MG/D (BIS 15) ]
     Route: 064
     Dates: start: 20181119, end: 20190810
  3. SPASMEX [Concomitant]
     Indication: PRODUCT USED FOR UNKNOWN INDICATION
     Dosage: 30 [MG/D (30-0-0) ]
     Route: 064
     Dates: start: 20181119, end: 20190206

REACTIONS (4)
  - Hypotonia [Unknown]
  - Kinematic imbalances due to suboccipital strain [Recovered/Resolved]
  - Infantile haemangioma [Unknown]
  - Foetal exposure during pregnancy [Unknown]
